FAERS Safety Report 9314241 (Version 1)
Quarter: 2013Q2

REPORT INFORMATION
  Report Type: Spontaneous
  Country: KR (occurrence: None)
  Receive Date: 20130522
  Receipt Date: 20130522
  Transmission Date: 20140414
  Serious: Yes (Hospitalization)
  Sender: FDA-Public Use
  Company Number: METF20130004

PATIENT
  Age: 62 Year
  Sex: Male

DRUGS (6)
  1. METFORMIN HYDROCHLORIDE [Suspect]
     Indication: DIABETES MELLITUS
     Route: 048
  2. AMLODIPINE BESYLATE TABLETS 5MG (AMLODIPINE BESILATE) 5 MILLIGRAM [Concomitant]
  3. GLICLAZIDE (GLICLAZIDE) (30 MILLIGRAM, UNKNOWN) (GLICLAZIDE) [Concomitant]
  4. VALSARTAN (VALSARTAN) (160 MILLIGRAM UNKNOWN) (VALSARTAN) [Concomitant]
  5. CALCIUM CARBONATE (CALCIUM CARBONATE) (1500 MILLIGRAM, UNKNOWN) (CALCIUM CARBONATE) [Concomitant]
  6. VITAMIN B AND C COMPLEX (ASCORBIC ACID, PYRIDOXINE HYDROCHLORIDE, THAMINE HYDROCHLORIDE, NICOTINAMIDE, RIBOFLAVIN SODIUMPHOSPHATE) (UNKNOWN) (ASCORBIC ACID, PYRIDOXINE HYDROCHLORIDE, THIAMINE HYDROCHLORIDE, NICOTINAMIDE, RIBOFLAVIN SODIUM PHOSPHATE) [Concomitant]

REACTIONS (6)
  - Encephalopathy [None]
  - Renal failure chronic [None]
  - Haemodialysis [None]
  - Dysarthria [None]
  - Myoclonus [None]
  - Blood glucose increased [None]
